FAERS Safety Report 12239811 (Version 1)
Quarter: 2016Q2

REPORT INFORMATION
  Report Type: Spontaneous
  Country: US (occurrence: US)
  Receive Date: 20160405
  Receipt Date: 20160405
  Transmission Date: 20160815
  Serious: No
  Sender: FDA-Public Use
  Company Number: US-ROCHE-1667121

PATIENT
  Sex: Female

DRUGS (10)
  1. PERJETA [Suspect]
     Active Substance: PERTUZUMAB
     Route: 065
  2. HERCEPTIN [Suspect]
     Active Substance: TRASTUZUMAB
     Indication: METASTATIC NEOPLASM
  3. PERJETA [Suspect]
     Active Substance: PERTUZUMAB
     Route: 065
  4. KADCYLA [Suspect]
     Active Substance: ADO-TRASTUZUMAB EMTANSINE
     Indication: BREAST CANCER
     Route: 065
  5. KADCYLA [Suspect]
     Active Substance: ADO-TRASTUZUMAB EMTANSINE
     Indication: METASTATIC NEOPLASM
  6. PERJETA [Suspect]
     Active Substance: PERTUZUMAB
     Indication: BREAST CANCER
     Dosage: HAD 840MG LOADING DOSE
     Route: 065
  7. TAXOTERE [Suspect]
     Active Substance: DOCETAXEL
     Indication: METASTATIC NEOPLASM
  8. HERCEPTIN [Suspect]
     Active Substance: TRASTUZUMAB
     Indication: BREAST CANCER
     Route: 042
  9. PERJETA [Suspect]
     Active Substance: PERTUZUMAB
     Indication: METASTATIC NEOPLASM
     Route: 065
  10. TAXOTERE [Suspect]
     Active Substance: DOCETAXEL
     Indication: BREAST CANCER
     Route: 065

REACTIONS (2)
  - Mucosal inflammation [Recovered/Resolved]
  - Dysphagia [Unknown]

NARRATIVE: CASE EVENT DATE: 20151201
